FAERS Safety Report 8801350 (Version 2)
Quarter: 2012Q4

REPORT INFORMATION
  Report Type: 
  Country: CN (occurrence: CN)
  Receive Date: 20120921
  Receipt Date: 20121211
  Transmission Date: 20130627
  Serious: Yes (Other)
  Sender: FDA-Public Use
  Company Number: CN-ABBOTT-12P-035-0981577-00

PATIENT
  Age: 20 Year
  Sex: Female

DRUGS (2)
  1. DEPAKINE [Suspect]
     Indication: EPILEPSY
     Dosage: Extended release
     Route: 048
     Dates: start: 2006, end: 20120831
  2. DEPAKINE [Suspect]
     Dosage: Extended release
     Route: 048
     Dates: start: 20120901

REACTIONS (7)
  - Product counterfeit [Unknown]
  - Epilepsy [Recovered/Resolved]
  - Convulsion [Unknown]
  - Trismus [Unknown]
  - Foaming at mouth [Unknown]
  - Confusional state [Unknown]
  - Aphonia [Unknown]
